FAERS Safety Report 6815413-8 (Version None)
Quarter: 2010Q3

REPORT INFORMATION
  Report Type: 
  Country: None (occurrence: None)
  Receive Date: 20100702
  Receipt Date: 20100629
  Transmission Date: 20110219
  Serious: Yes (Other)
  Sender: FDA-Public Use
  Company Number: US-ELI_LILLY_AND_COMPANY-US201002000138

PATIENT
  Sex: Female

DRUGS (1)
  1. HUMALOG [Suspect]
     Indication: TYPE 2 DIABETES MELLITUS
     Dosage: 15 U, 2/D
     Dates: start: 20050608

REACTIONS (16)
  - ADVERSE DRUG REACTION [None]
  - ASTHENIA [None]
  - BLOOD GLUCOSE DECREASED [None]
  - BRAIN INJURY [None]
  - CONFUSIONAL STATE [None]
  - DEPRESSION [None]
  - EYE DISORDER [None]
  - FALL [None]
  - FEELING ABNORMAL [None]
  - INFECTION [None]
  - MEDICATION ERROR [None]
  - MEMORY IMPAIRMENT [None]
  - MIGRAINE [None]
  - MUSCLE STRAIN [None]
  - NERVOUS SYSTEM DISORDER [None]
  - VISUAL ACUITY REDUCED [None]
